FAERS Safety Report 5921651-9 (Version None)
Quarter: 2008Q4

REPORT INFORMATION
  Report Type: 
  Country: None (occurrence: None)
  Receive Date: 20081017
  Receipt Date: 20081010
  Transmission Date: 20090506
  Serious: Yes (Death)
  Sender: FDA-Public Use
  Company Number: US-ASTRAZENECA-2008UW15559

PATIENT
  Age: 7 Year
  Sex: Male

DRUGS (7)
  1. SYMBICORT [Suspect]
     Indication: ASTHMA
     Dosage: 160/4.5 MCG  2 INHALATIONS TWICE A DAY
     Route: 055
     Dates: start: 20080514
  2. PREVACID [Concomitant]
  3. PREVACID [Concomitant]
  4. XOPENEX [Concomitant]
     Dosage: 2 PUFFS
  5. SINGULAIR [Concomitant]
     Indication: ASTHMA
  6. DUONEB [Concomitant]
  7. NASONEX [Concomitant]

REACTIONS (1)
  - ASTHMA [None]
